FAERS Safety Report 8155975-4 (Version None)
Quarter: 2012Q1

REPORT INFORMATION
  Report Type: 
  Country: None (occurrence: None)
  Receive Date: 20120221
  Receipt Date: 20120221
  Transmission Date: 20120608
  Serious: Yes (Hospitalization, Other)
  Sender: FDA-Public Use
  Company Number: None

PATIENT

DRUGS (1)
  1. CALCIUM GLUCONATE [Suspect]

REACTIONS (9)
  - NAUSEA [None]
  - DIZZINESS [None]
  - VOMITING [None]
  - PALLOR [None]
  - PULSE ABNORMAL [None]
  - FATIGUE [None]
  - FEELING ABNORMAL [None]
  - CHILLS [None]
  - TREMOR [None]
